FAERS Safety Report 4996935-1 (Version None)
Quarter: 2006Q2

REPORT INFORMATION
  Report Type: 
  Country: None (occurrence: None)
  Receive Date: 20060509
  Receipt Date: 20060503
  Transmission Date: 20061013
  Serious: Yes (Hospitalization)
  Sender: FDA-Public Use
  Company Number: FR-GLAXOSMITHKLINE-B0422645A

PATIENT
  Age: 12 Year
  Sex: Female
  Weight: 24 kg

DRUGS (7)
  1. AUGMENTIN '125' [Suspect]
     Indication: OTITIS MEDIA
     Route: 048
     Dates: start: 20060312, end: 20060317
  2. COUMADIN [Suspect]
     Dosage: 2.25MG PER DAY
     Route: 048
     Dates: end: 20060317
  3. CELESTENE [Suspect]
     Indication: OTITIS MEDIA
     Route: 048
     Dates: start: 20060312, end: 20060317
  4. CORDARONE [Concomitant]
     Indication: ARRHYTHMIA
     Route: 048
  5. URBANYL [Concomitant]
     Indication: EPILEPSY
     Dosage: 5MG PER DAY
     Route: 048
  6. ACIDE VALPROIQUE SEL DE SODIUM [Concomitant]
     Indication: EPILEPSY
     Route: 048
  7. ACETAMINOPHEN [Concomitant]
     Route: 065
     Dates: start: 20060301

REACTIONS (3)
  - DRUG INTERACTION [None]
  - HAEMATOMA [None]
  - INTERNATIONAL NORMALISED RATIO INCREASED [None]
